FAERS Safety Report 15509341 (Version 1)
Quarter: 2018Q4

REPORT INFORMATION
  Report Type: Spontaneous
  Country: US (occurrence: US)
  Receive Date: 20181016
  Receipt Date: 20181016
  Transmission Date: 20190205
  Serious: Yes (Other)
  Sender: FDA-Public Use
  Company Number: None

PATIENT
  Age: 35 Year
  Sex: Female
  Weight: 65 kg

DRUGS (1)
  1. ESCITALOPRAM [Suspect]
     Active Substance: ESCITALOPRAM OXALATE
     Indication: ANXIETY
     Route: 048
     Dates: start: 20180715, end: 20181008

REACTIONS (8)
  - Chest pain [None]
  - Arthralgia [None]
  - Suicidal ideation [None]
  - Dental caries [None]
  - Alopecia [None]
  - Loss of personal independence in daily activities [None]
  - Anxiety [None]
  - Bone pain [None]
